FAERS Safety Report 25045601 (Version 1)
Quarter: 2025Q1

REPORT INFORMATION
  Report Type: Spontaneous
  Country: US (occurrence: None)
  Receive Date: 20250305
  Receipt Date: 20250305
  Transmission Date: 20250409
  Serious: Yes (Hospitalization)
  Sender: FDA-CTU
  Company Number: None

PATIENT
  Age: 71 Year

DRUGS (16)
  1. ICLUSIG [Suspect]
     Active Substance: PONATINIB HYDROCHLORIDE
     Indication: B-cell type acute leukaemia
     Dosage: 30 MG DAILY ORAL
     Route: 048
  2. Acetaminophen 325mg [Concomitant]
  3. ACYCLOVIR [Concomitant]
     Active Substance: ACYCLOVIR
  4. ALBUTEROL SULFATE [Concomitant]
     Active Substance: ALBUTEROL SULFATE
  5. ALLOPURINOL [Concomitant]
     Active Substance: ALLOPURINOL
  6. BUPROPION [Concomitant]
     Active Substance: BUPROPION
  7. CALCIUM\VITAMIN D [Concomitant]
     Active Substance: CALCIUM\VITAMIN D
  8. CLONAZEPAM [Concomitant]
     Active Substance: CLONAZEPAM
  9. CETIRIZINE [Concomitant]
     Active Substance: CETIRIZINE HYDROCHLORIDE
  10. FLUOXETINE HYDROCHLORIDE [Concomitant]
     Active Substance: FLUOXETINE HYDROCHLORIDE
  11. OXYCODONE [Concomitant]
     Active Substance: OXYCODONE
  12. POTASSIUM CHLORIDE [Concomitant]
     Active Substance: POTASSIUM CHLORIDE
  13. Sucralfate 1gm/10mL [Concomitant]
  14. BACTRIM DS [Concomitant]
     Active Substance: SULFAMETHOXAZOLE\TRIMETHOPRIM
  15. TOPIRAMATE [Concomitant]
     Active Substance: TOPIRAMATE
  16. TRAZODONE [Concomitant]
     Active Substance: TRAZODONE HYDROCHLORIDE

REACTIONS (2)
  - Pleural effusion [None]
  - Pancreatitis [None]

NARRATIVE: CASE EVENT DATE: 20250226
